FAERS Safety Report 25675336 (Version 1)
Quarter: 2025Q3

REPORT INFORMATION
  Report Type: Spontaneous
  Country: US (occurrence: None)
  Receive Date: 20250812
  Receipt Date: 20250812
  Transmission Date: 20251020
  Serious: Yes (Other)
  Sender: FDA-CTU
  Company Number: None

PATIENT
  Sex: Female

DRUGS (9)
  1. BOTOX [Suspect]
     Active Substance: ONABOTULINUMTOXINA
     Indication: Migraine
     Route: 030
     Dates: start: 20250314
  2. SUMATRIPTAN [Suspect]
     Active Substance: SUMATRIPTAN
  3. ASPIRIN [Concomitant]
     Active Substance: ASPIRIN
  4. CLOTRIM/BETA CRE [Concomitant]
  5. FLUOXETINE [Concomitant]
     Active Substance: FLUOXETINE HYDROCHLORIDE
  6. METOCLOPRAMIDE [Concomitant]
     Active Substance: METOCLOPRAMIDE
  7. SUMATRIPTAN [Concomitant]
     Active Substance: SUMATRIPTAN
  8. TERCONAZOLE CRE [Concomitant]
  9. ZUMANDIMINE [Concomitant]
     Active Substance: DROSPIRENONE\ETHINYL ESTRADIOL

REACTIONS (2)
  - Drug ineffective [None]
  - Therapy interrupted [None]
